FAERS Safety Report 5397675-X (Version None)
Quarter: 2007Q3

REPORT INFORMATION
  Report Type: 
  Country: None (occurrence: None)
  Receive Date: 20070723
  Receipt Date: 20070723
  Transmission Date: 20080115
  Serious: Yes (Other)
  Sender: FDA-Public Use
  Company Number: None

PATIENT
  Sex: Female

DRUGS (8)
  1. REVLIMID [Suspect]
     Indication: MULTIPLE MYELOMA
     Dosage: 25MG DAILY 21D/28D PO
     Route: 048
  2. PROCRIT [Concomitant]
  3. DECADRON [Concomitant]
  4. WARFARIN SODIUM [Concomitant]
  5. OMEPRAZOLE [Concomitant]
  6. LOVASTATIN [Concomitant]
  7. METOPROLOL SUCCINATE [Concomitant]
  8. ACTOS [Concomitant]

REACTIONS (1)
  - NEUTROPHIL COUNT DECREASED [None]
